FAERS Safety Report 7970293-2 (Version None)
Quarter: 2011Q4

REPORT INFORMATION
  Report Type: 
  Country: None (occurrence: None)
  Receive Date: 20111212
  Receipt Date: 20110426
  Transmission Date: 20120403
  Serious: Yes (Hospitalization, Other)
  Sender: FDA-Public Use
  Company Number: US-BAYER-201031315NA

PATIENT
  Age: 37 Year
  Sex: Female
  Weight: 73.469 kg

DRUGS (1)
  1. MIRENA [Suspect]
     Indication: CONTRACEPTION
     Dosage: FREQUENCY: CONTINUOUS
     Route: 015
     Dates: start: 20050501, end: 20100805

REACTIONS (2)
  - DEVICE BREAKAGE [None]
  - DEVICE DISLOCATION [None]
